FAERS Safety Report 7779638-X (Version None)
Quarter: 2011Q3

REPORT INFORMATION
  Report Type: 
  Country: None (occurrence: None)
  Receive Date: 20110927
  Receipt Date: 20100527
  Transmission Date: 20111222
  Serious: No
  Sender: FDA-Public Use
  Company Number: US-ASTRAZENECA-2008UW22371

PATIENT
  Age: 18042 Day
  Sex: Female
  Weight: 57.2 kg

DRUGS (6)
  1. RISPERDAL [Concomitant]
     Dates: start: 20070101
  2. ALPRAZOLAM [Concomitant]
     Dosage: 1 MG TO 2 MG
     Dates: start: 20040107
  3. SEROQUEL [Suspect]
     Indication: BIPOLAR DISORDER
     Dosage: 50-400 MG
     Route: 048
     Dates: start: 20041006
  4. SEROQUEL [Suspect]
     Dosage: 200-300 MG
     Route: 048
     Dates: start: 20060518
  5. LEXAPRO [Concomitant]
     Dates: start: 20060101
  6. HYDROCODONE [Concomitant]
     Dates: start: 20040923

REACTIONS (4)
  - DIABETES MELLITUS [None]
  - GASTROINTESTINAL DISORDER [None]
  - BLOOD CHOLESTEROL INCREASED [None]
  - PAIN IN EXTREMITY [None]
